FAERS Safety Report 12237015 (Version 1)
Quarter: 2016Q2

REPORT INFORMATION
  Report Type: Spontaneous
  Country: US (occurrence: None)
  Receive Date: 20160404
  Receipt Date: 20160404
  Transmission Date: 20160815
  Serious: Yes (Hospitalization)
  Sender: FDA-Public Use
  Company Number: None

PATIENT
  Age: 69 Year
  Sex: Male
  Weight: 75.5 kg

DRUGS (1)
  1. ABATACEPT [Suspect]
     Active Substance: ABATACEPT
     Indication: RHEUMATOID ARTHRITIS
     Route: 042
     Dates: start: 20160303, end: 20160303

REACTIONS (7)
  - Dyspnoea [None]
  - Rash [None]
  - Lip swelling [None]
  - Eyelid oedema [None]
  - Anaphylactic reaction [None]
  - Pruritus [None]
  - Chest pain [None]

NARRATIVE: CASE EVENT DATE: 20160303
